FAERS Safety Report 4912289-0 (Version None)
Quarter: 2006Q1

REPORT INFORMATION
  Report Type: 
  Country: None (occurrence: None)
  Receive Date: 20060215
  Receipt Date: 20051227
  Transmission Date: 20060701
  Serious: No
  Sender: FDA-Public Use
  Company Number: US-GLAXOSMITHKLINE-A0587045A

PATIENT
  Age: 52 Year
  Sex: Female

DRUGS (6)
  1. VALTREX [Suspect]
     Dosage: 500MG PER DAY
     Route: 048
     Dates: start: 20051205
  2. BIRTH CONTROL PILLS [Concomitant]
  3. LORAZEPAM [Concomitant]
  4. PREVACID [Concomitant]
  5. MOBID [Concomitant]
  6. BLOOD PRESSURE MEDICATION [Concomitant]

REACTIONS (11)
  - ABDOMINAL PAIN UPPER [None]
  - DISORIENTATION [None]
  - DIZZINESS [None]
  - FATIGUE [None]
  - HEADACHE [None]
  - NAUSEA [None]
  - NERVOUSNESS [None]
  - PAROSMIA [None]
  - SINUSITIS [None]
  - SOMNOLENCE [None]
  - STOMACH DISCOMFORT [None]
